FAERS Safety Report 4510111-8 (Version None)
Quarter: 2004Q4

REPORT INFORMATION
  Report Type: 
  Country: None (occurrence: None)
  Receive Date: 20041119
  Receipt Date: 20041104
  Transmission Date: 20050328
  Serious: Yes (Hospitalization)
  Sender: FDA-Public Use
  Company Number: 2004-11-0885

PATIENT
  Age: 70 Year
  Sex: Male

DRUGS (2)
  1. INTRON A [Suspect]
     Indication: HEPATITIS C
     Dosage: SEE IMAGE
     Dates: start: 19930508, end: 19930601
  2. INTRON A [Suspect]
     Indication: HEPATITIS C
     Dosage: SEE IMAGE
     Dates: start: 19930508, end: 19931001

REACTIONS (1)
  - HEPATIC NEOPLASM MALIGNANT [None]
